FAERS Safety Report 6589083-0 (Version None)
Quarter: 2010Q1

REPORT INFORMATION
  Report Type: 
  Country: None (occurrence: None)
  Receive Date: 20100218
  Receipt Date: 20100211
  Transmission Date: 20100710
  Serious: Yes (Hospitalization)
  Sender: FDA-Public Use
  Company Number: GXKR2010US01746

PATIENT
  Age: 49 Year
  Sex: Female

DRUGS (4)
  1. DIPHENHYDRAMINE (NGX) [Suspect]
     Dosage: 10 G, UNK
     Route: 048
  2. ZIPRASIDONE HCL [Concomitant]
  3. LITHIUM [Concomitant]
  4. CLONAZEPAM [Concomitant]

REACTIONS (9)
  - CARDIAC PACEMAKER INSERTION [None]
  - ENDOTRACHEAL INTUBATION [None]
  - INTENTIONAL OVERDOSE [None]
  - MECHANICAL VENTILATION [None]
  - MENTAL STATUS CHANGES [None]
  - PNEUMONIA ASPIRATION [None]
  - SINUS TACHYCARDIA [None]
  - TORSADE DE POINTES [None]
  - VENTRICULAR TACHYCARDIA [None]
